FAERS Safety Report 6012615-8 (Version None)
Quarter: 2008Q4

REPORT INFORMATION
  Report Type: 
  Country: None (occurrence: None)
  Receive Date: 20081218
  Receipt Date: 20081209
  Transmission Date: 20090506
  Serious: Yes (Other)
  Sender: FDA-Public Use
  Company Number: CA-ABBOTT-08P-028-0492017-00

PATIENT
  Sex: Male
  Weight: 124.85 kg

DRUGS (2)
  1. HUMIRA [Suspect]
     Indication: DRUG USE FOR UNKNOWN INDICATION
  2. HUMIRA [Suspect]
     Indication: DRUG USE FOR UNKNOWN INDICATION
     Dates: end: 20081101

REACTIONS (5)
  - CELLULITIS [None]
  - INJECTION SITE PAIN [None]
  - PAIN [None]
  - SCAB [None]
  - SECRETION DISCHARGE [None]
